FAERS Safety Report 12561449 (Version 2)
Quarter: 2016Q3

REPORT INFORMATION
  Report Type: Report from Study
  Country: DE (occurrence: DE)
  Receive Date: 20160715
  Receipt Date: 20160915
  Transmission Date: 20161109
  Serious: Yes (Hospitalization)
  Sender: FDA-Public Use
  Company Number: DE-CELGENEUS-DEU-2016070069

PATIENT
  Age: 76 Year
  Sex: Female
  Weight: 66 kg

DRUGS (3)
  1. XARELTO [Concomitant]
     Active Substance: RIVAROXABAN
     Indication: THROMBOSIS PROPHYLAXIS
     Route: 065
     Dates: start: 20160613
  2. ABRAXANE [Suspect]
     Active Substance: PACLITAXEL
     Indication: BREAST CANCER
     Route: 041
     Dates: start: 20160614
  3. MACUMAR [Concomitant]
     Indication: VARICES OESOPHAGEAL
     Route: 065

REACTIONS (1)
  - Pyloric stenosis [Recovered/Resolved]

NARRATIVE: CASE EVENT DATE: 20160617
